FAERS Safety Report 4685499-8 (Version None)
Quarter: 2005Q2

REPORT INFORMATION
  Report Type: 
  Country: None (occurrence: None)
  Receive Date: 20050608
  Receipt Date: 20050523
  Transmission Date: 20051028
  Serious: Yes (Hospitalization, Disabling)
  Sender: FDA-Public Use
  Company Number: PHRM2005FR01609

PATIENT
  Age: 82 Year
  Sex: Male
  Weight: 86 kg

DRUGS (4)
  1. ZOMETA [Suspect]
     Indication: MULTIPLE MYELOMA
     Dosage: 4 MG, QMO
     Route: 042
     Dates: start: 20020401, end: 20050301
  2. MELPHALAN [Suspect]
     Indication: MULTIPLE MYELOMA
     Dosage: 10 MG/DAY 5 DAYS/7
     Route: 048
     Dates: start: 20000501, end: 20011201
  3. SOLUPRED [Suspect]
     Indication: MULTIPLE MYELOMA
     Dosage: 80 MG/DAY 5 DAYS/7
     Route: 048
     Dates: start: 20040501
  4. AREDIA [Suspect]
     Indication: MULTIPLE MYELOMA
     Dosage: 20 MG
     Route: 042
     Dates: start: 20000501, end: 20020301

REACTIONS (7)
  - ASEPTIC NECROSIS BONE [None]
  - BONE DISORDER [None]
  - BONE INFECTION [None]
  - GINGIVAL PAIN [None]
  - HALITOSIS [None]
  - INFLAMMATION [None]
  - MUCOSAL ULCERATION [None]
